FAERS Safety Report 4440362-2 (Version None)
Quarter: 2004Q3

REPORT INFORMATION
  Report Type: 
  Country: None (occurrence: None)
  Receive Date: 20040901
  Receipt Date: 20040901
  Transmission Date: 20050211
  Serious: Yes (Disabling, Other)
  Sender: FDA-Public Use
  Company Number: None

PATIENT
  Age: 36 Year
  Sex: Female
  Weight: 61.2356 kg

DRUGS (4)
  1. ZOLOFT [Suspect]
     Indication: BIPOLAR DISORDER
     Dosage: SEE IMAGE PER  FDA ONSITE REP
     Dates: start: 20040707, end: 20040707
  2. ZOLOFT [Suspect]
     Indication: BIPOLAR I DISORDER
     Dosage: SEE IMAGE PER  FDA ONSITE REP
     Dates: start: 20040707, end: 20040707
  3. ZOLOFT [Suspect]
     Indication: PANIC ATTACK
     Dosage: SEE IMAGE PER  FDA ONSITE REP
     Dates: start: 20040707, end: 20040707
  4. WELLBUTRIN XL [Suspect]
     Dosage: SEE IMAGE PER JW FDA ONSITE REP
     Dates: start: 20040924, end: 20041231

REACTIONS (5)
  - BALANCE DISORDER [None]
  - DRUG INEFFECTIVE [None]
  - MUSCULAR WEAKNESS [None]
  - PARAESTHESIA [None]
  - VISION BLURRED [None]
